FAERS Safety Report 5506385-7 (Version None)
Quarter: 2007Q4

REPORT INFORMATION
  Report Type: 
  Country: None (occurrence: None)
  Receive Date: 20071105
  Receipt Date: 20071026
  Transmission Date: 20080405
  Serious: Yes (Other)
  Sender: FDA-Public Use
  Company Number: JP-JNJFOC-20071007550

PATIENT
  Age: 8 Decade

DRUGS (3)
  1. RISPERDAL [Suspect]
     Indication: DRUG USE FOR UNKNOWN INDICATION
     Route: 048
  2. AKINETON [Concomitant]
  3. TRYPTANOL [Concomitant]

REACTIONS (2)
  - BRADYCARDIA [None]
  - DRUG INEFFECTIVE [None]
